FAERS Safety Report 4718115-7 (Version None)
Quarter: 2005Q3

REPORT INFORMATION
  Report Type: 
  Country: None (occurrence: None)
  Receive Date: 20050720
  Receipt Date: 20050706
  Transmission Date: 20060218
  Serious: Yes (Hospitalization)
  Sender: FDA-Public Use
  Company Number: FR-NOVOPROD-245337

PATIENT
  Age: 65 Year
  Sex: Female

DRUGS (6)
  1. INSULATARD FLEXPEN [Suspect]
     Indication: DIABETES MELLITUS
  2. VOLTAREN [Concomitant]
     Indication: ILL-DEFINED DISORDER
  3. TOPALGIC [Concomitant]
     Indication: ILL-DEFINED DISORDER
     Dosage: 150 MG, UNK
     Route: 048
     Dates: start: 20050505
  4. ZALDIAR [Concomitant]
     Dosage: 75 MG, UNK
     Route: 048
     Dates: start: 20050502, end: 20050504
  5. PLAVIX [Concomitant]
     Dosage: 75 MG, UNK
  6. RAMIPRIL [Concomitant]
     Dosage: UNK, UNK

REACTIONS (4)
  - DYSKINESIA [None]
  - HYPERTONIA [None]
  - MUSCLE CONTRACTIONS INVOLUNTARY [None]
  - MUSCLE SPASMS [None]
